FAERS Safety Report 6219279-9 (Version None)
Quarter: 2009Q2

REPORT INFORMATION
  Report Type: 
  Country: None (occurrence: None)
  Receive Date: 20090609
  Receipt Date: 20090527
  Transmission Date: 20091009
  Serious: Yes (Other)
  Sender: FDA-Public Use
  Company Number: JP-ELI_LILLY_AND_COMPANY-JP200905005456

PATIENT
  Age: 77 Year
  Sex: Male

DRUGS (6)
  1. GEMZAR [Suspect]
     Indication: PANCREATIC CARCINOMA
     Dosage: 1000 MG, OTHER
     Route: 042
     Dates: start: 20080116
  2. TS 1 [Concomitant]
     Indication: PANCREATIC CARCINOMA
     Dosage: 80 MG, OTHER
     Route: 048
     Dates: start: 20080116
  3. NORVASC [Concomitant]
     Indication: HYPERTENSION
     Dosage: 2.5 MG, UNK
     Route: 048
  4. LASIX [Concomitant]
     Indication: HYPERTENSION
     Dosage: 20 MG, UNK
     Route: 048
  5. ALDACTONE [Concomitant]
     Dosage: 1 D/F, DAILY (1/D)
     Route: 048
  6. MAGMITT [Concomitant]
     Indication: CONSTIPATION
     Dosage: 1 D/F, 3/D
     Route: 048

REACTIONS (1)
  - VISUAL ACUITY REDUCED [None]
